FAERS Safety Report 5694457-6 (Version None)
Quarter: 2008Q2

REPORT INFORMATION
  Report Type: 
  Country: None (occurrence: None)
  Receive Date: 20080404
  Receipt Date: 20080331
  Transmission Date: 20081010
  Serious: Yes (Other)
  Sender: FDA-Public Use
  Company Number: PHEH2008US03308

PATIENT
  Sex: Male

DRUGS (1)
  1. MIACALCIN [Suspect]

REACTIONS (2)
  - DRUG INTOLERANCE [None]
  - FRACTURE [None]
